FAERS Safety Report 7686383-8 (Version None)
Quarter: 2011Q3

REPORT INFORMATION
  Report Type: 
  Country: None (occurrence: None)
  Receive Date: 20110816
  Receipt Date: 20110805
  Transmission Date: 20111222
  Serious: Yes (Hospitalization)
  Sender: FDA-Public Use
  Company Number: IT-NOVOPROD-331143

PATIENT

DRUGS (9)
  1. SEACOR [Concomitant]
     Dosage: 1 TAB, QD
     Route: 048
  2. RAMIPRIL [Concomitant]
     Dosage: 1 TAB, QD
     Route: 048
  3. LEVEMIR [Suspect]
     Indication: TYPE 2 DIABETES MELLITUS
     Dosage: 28 U, QD
     Route: 058
     Dates: start: 20100602
  4. NOVORAPID FLEXPEN [Suspect]
     Indication: TYPE 2 DIABETES MELLITUS
     Dosage: 62 U, QD
     Route: 058
     Dates: start: 20010602
  5. LASIX [Concomitant]
     Dosage: UNK
  6. LEVEMIR [Suspect]
     Dosage: UNK
  7. VALPRESSION [Concomitant]
     Dosage: 1 MG, QD
     Route: 048
  8. MONOKET [Concomitant]
     Dosage: 1 TAB, QD
     Route: 048
  9. ROSUVASTATIN [Concomitant]
     Dosage: 1 TAB, QD
     Route: 048

REACTIONS (2)
  - HYPOPHAGIA [None]
  - HYPOGLYCAEMIA [None]
